FAERS Safety Report 10496086 (Version 1)
Quarter: 2014Q4

REPORT INFORMATION
  Report Type: Spontaneous
  Country: US (occurrence: US)
  Receive Date: 20141003
  Receipt Date: 20141003
  Transmission Date: 20150528
  Serious: Yes (Other)
  Sender: FDA-Public Use
  Company Number: US-ABBVIE-14P-163-1288152-00

PATIENT
  Age: 83 Year
  Sex: Male

DRUGS (10)
  1. LUPRON DEPOT [Suspect]
     Active Substance: LEUPROLIDE ACETATE
  2. ZYTIGA [Concomitant]
     Active Substance: ABIRATERONE ACETATE
     Indication: PRODUCT USED FOR UNKNOWN INDICATION
  3. CASODEX [Concomitant]
     Active Substance: BICALUTAMIDE
     Indication: PRODUCT USED FOR UNKNOWN INDICATION
  4. FIRMAGON [Concomitant]
     Active Substance: DEGARELIX ACETATE
     Indication: PRODUCT USED FOR UNKNOWN INDICATION
     Dates: start: 20140407
  5. LUPRON DEPOT [Suspect]
     Active Substance: LEUPROLIDE ACETATE
     Indication: PRODUCT USED FOR UNKNOWN INDICATION
     Dates: start: 201402
  6. LUPRON DEPOT [Suspect]
     Active Substance: LEUPROLIDE ACETATE
  7. XGEVA [Concomitant]
     Active Substance: DENOSUMAB
  8. XGEVA [Concomitant]
     Active Substance: DENOSUMAB
  9. XTANDI [Concomitant]
     Active Substance: ENZALUTAMIDE
     Indication: PRODUCT USED FOR UNKNOWN INDICATION
     Dates: start: 201402
  10. XGEVA [Concomitant]
     Active Substance: DENOSUMAB
     Indication: PRODUCT USED FOR UNKNOWN INDICATION
     Dates: start: 201402

REACTIONS (3)
  - Drug ineffective [Unknown]
  - Prostatic specific antigen increased [Unknown]
  - Metastases to bone [Unknown]

NARRATIVE: CASE EVENT DATE: 20140408
